FAERS Safety Report 5305056-X (Version None)
Quarter: 2007Q2

REPORT INFORMATION
  Report Type: 
  Country: None (occurrence: None)
  Receive Date: 20070417
  Receipt Date: 20070405
  Transmission Date: 20071010
  Serious: Yes (Hospitalization)
  Sender: FDA-Public Use
  Company Number: 2007BI003362

PATIENT
  Age: 60 Year
  Sex: Female
  Weight: 56.246 kg

DRUGS (3)
  1. AVONEX [Suspect]
     Dosage: 30 UG;QW; IM
     Route: 030
     Dates: start: 20000101, end: 20010101
  2. AVONEX [Suspect]
     Indication: MULTIPLE SCLEROSIS
     Dosage: 30 UG; QW; IM
     Route: 030
     Dates: start: 20020806, end: 20030521
  3. AVONEX [Suspect]
     Indication: MULTIPLE SCLEROSIS
     Dosage: 30 UG; QW; IM
     Route: 030
     Dates: start: 20040130

REACTIONS (3)
  - BACK PAIN [None]
  - PAIN [None]
  - RESPIRATORY TRACT INFECTION [None]
